FAERS Safety Report 5677694-6 (Version None)
Quarter: 2008Q1

REPORT INFORMATION
  Report Type: 
  Country: None (occurrence: None)
  Receive Date: 20080324
  Receipt Date: 20080228
  Transmission Date: 20080703
  Serious: No
  Sender: FDA-Public Use
  Company Number: US-BOEHRINGER INGELHEIM GMBH, GERMANY-2008-BP-03046BP

PATIENT
  Sex: Female
  Weight: 91 kg

DRUGS (5)
  1. MIRAPEX [Suspect]
     Indication: RESTLESS LEGS SYNDROME
     Route: 048
     Dates: start: 20030101
  2. LOTREL [Concomitant]
  3. INDERAL [Concomitant]
  4. NEXIUM [Concomitant]
  5. EFFEXOR [Concomitant]

REACTIONS (3)
  - HYPERPHAGIA [None]
  - OBSESSIVE-COMPULSIVE DISORDER [None]
  - WEIGHT INCREASED [None]
